FAERS Safety Report 8815817 (Version 2)
Quarter: 2012Q4

REPORT INFORMATION
  Report Type: Report from Study
  Country: US (occurrence: US)
  Receive Date: 20120928
  Receipt Date: 20121015
  Transmission Date: 20130627
  Serious: Yes (Other)
  Sender: FDA-Public Use
  Company Number: US-US-EMD SERONO, INC.-7162979

PATIENT
  Age: 41 Year
  Sex: Female
  Weight: 100 kg

DRUGS (5)
  1. REBIF [Suspect]
     Indication: MULTIPLE SCLEROSIS
     Route: 058
     Dates: start: 201109, end: 201208
  2. REBIF [Suspect]
     Dates: end: 201209
  3. METFORMIN HYDROCHLORIDE [Concomitant]
     Indication: PRODUCT USED FOR UNKNOWN INDICATION
     Route: 048
     Dates: start: 20120628
  4. LYRICA [Concomitant]
     Indication: PRODUCT USED FOR UNKNOWN INDICATION
     Route: 048
     Dates: start: 20120424
  5. VICTOZA [Concomitant]
     Indication: PRODUCT USED FOR UNKNOWN INDICATION
     Route: 058
     Dates: start: 20120424

REACTIONS (10)
  - Dermal cyst [Recovered/Resolved]
  - Viral infection [Unknown]
  - Bronchitis [Unknown]
  - Influenza [Unknown]
  - Radiculopathy [Unknown]
  - Back pain [Unknown]
  - Hypoaesthesia [Unknown]
  - Malaise [Unknown]
  - Pyrexia [Recovered/Resolved]
  - Rash [Unknown]
